FAERS Safety Report 9471229 (Version 1)
Quarter: 2013Q3

REPORT INFORMATION
  Report Type: Spontaneous
  Country: None (occurrence: US)
  Receive Date: 20130822
  Receipt Date: 20130822
  Transmission Date: 20140515
  Serious: No
  Sender: FDA-Public Use
  Company Number: US-TARO-2013P1004886

PATIENT
  Sex: 0

DRUGS (1)
  1. LAMISIL [Suspect]
     Indication: TINEA CRURIS

REACTIONS (1)
  - Drug effect delayed [Not Recovered/Not Resolved]
